FAERS Safety Report 4824026-9 (Version None)
Quarter: 2005Q4

REPORT INFORMATION
  Report Type: 
  Country: None (occurrence: None)
  Receive Date: 20051108
  Receipt Date: 20051028
  Transmission Date: 20060501
  Serious: Yes (Death)
  Sender: FDA-Public Use
  Company Number: HQWYE305128OCT05

PATIENT
  Age: 81 Year
  Sex: Male

DRUGS (1)
  1. PANTOLOC (PANTOPRAZOLE, TABLET, DELAYED RELEASE) [Suspect]
     Dosage: ^DF^, ORAL
     Route: 048

REACTIONS (1)
  - DEATH [None]
